FAERS Safety Report 6769252-7 (Version None)
Quarter: 2010Q2

REPORT INFORMATION
  Report Type: 
  Country: None (occurrence: None)
  Receive Date: 20100615
  Receipt Date: 20100603
  Transmission Date: 20101027
  Serious: Yes (Hospitalization)
  Sender: FDA-Public Use
  Company Number: US-JNJFOC-20100601982

PATIENT
  Sex: Male
  Weight: 67.3 kg

DRUGS (5)
  1. REMICADE [Suspect]
     Indication: CROHN'S DISEASE
     Route: 042
  2. REMICADE [Suspect]
     Route: 042
  3. DRUGS FOR ACID RELATED DISORDERS [Concomitant]
  4. METRONIDAZOLE [Concomitant]
  5. CIPROFLOXACIN [Concomitant]

REACTIONS (3)
  - FISTULA [None]
  - INTESTINAL STENOSIS [None]
  - WEIGHT DECREASED [None]
